FAERS Safety Report 8062922-2 (Version None)
Quarter: 2012Q1

REPORT INFORMATION
  Report Type: 
  Country: None (occurrence: None)
  Receive Date: 20120123
  Receipt Date: 20120123
  Transmission Date: 20120608
  Serious: Yes (Other)
  Sender: FDA-Public Use
  Company Number: None

PATIENT
  Age: 60 Year
  Sex: Male
  Weight: 136.07 kg

DRUGS (1)
  1. ANDROGEL [Suspect]
     Indication: BLOOD TESTOSTERONE DECREASED
     Dosage: 7.5G
     Route: 062
     Dates: start: 20110605, end: 20111226

REACTIONS (3)
  - MYALGIA [None]
  - JOINT SWELLING [None]
  - PERIPHERAL COLDNESS [None]
